FAERS Safety Report 6547405-0 (Version None)
Quarter: 2010Q1

REPORT INFORMATION
  Report Type: 
  Country: None (occurrence: None)
  Receive Date: 20100122
  Receipt Date: 20100119
  Transmission Date: 20100710
  Serious: Yes (Other)
  Sender: FDA-Public Use
  Company Number: PHEH2010US01006

PATIENT

DRUGS (1)
  1. EXELON [Suspect]

REACTIONS (1)
  - SURGERY [None]
